FAERS Safety Report 19960183 (Version 3)
Quarter: 2021Q4

REPORT INFORMATION
  Report Type: Report from Study
  Country: US (occurrence: US)
  Receive Date: 20211015
  Receipt Date: 20211229
  Transmission Date: 20220303
  Serious: Yes (Disabling)
  Sender: FDA-Public Use
  Company Number: US-NOVARTISPH-NVSC2021US232549

PATIENT
  Sex: Male

DRUGS (1)
  1. ENTRESTO [Suspect]
     Active Substance: SACUBITRIL\VALSARTAN
     Indication: Cardiac failure
     Dosage: 1 DF, BID
     Route: 048

REACTIONS (10)
  - Gait disturbance [Unknown]
  - Pain in extremity [Unknown]
  - Hypoaesthesia [Unknown]
  - Peripheral swelling [Unknown]
  - Memory impairment [Unknown]
  - Arteriosclerosis [Unknown]
  - Throat clearing [Unknown]
  - Rhinorrhoea [Unknown]
  - Dysphonia [Unknown]
  - Hypersensitivity [Unknown]
